FAERS Safety Report 7409012-7 (Version None)
Quarter: 2011Q2

REPORT INFORMATION
  Report Type: 
  Country: None (occurrence: None)
  Receive Date: 20110412
  Receipt Date: 20110405
  Transmission Date: 20111010
  Serious: Yes (Other)
  Sender: FDA-Public Use
  Company Number: US-PFIZER INC-2011075752

PATIENT
  Sex: Female
  Weight: 87.982 kg

DRUGS (5)
  1. ZONEGRAN [Concomitant]
     Indication: CONVULSION
     Dosage: UNK
  2. ZOLOFT [Suspect]
     Indication: POSTPARTUM DEPRESSION
     Dosage: 50 MG, 1X/DAY
     Route: 048
     Dates: start: 20080501
  3. VIMPAT [Concomitant]
     Indication: CONVULSION
     Dosage: UNK
  4. ZOLOFT [Interacting]
     Dosage: 200 MG, 1X/DAY
     Route: 048
     Dates: end: 20110301
  5. RITALIN [Interacting]
     Indication: WEIGHT CONTROL
     Dosage: 20 MG, DAILY
     Route: 048
     Dates: start: 20101201, end: 20110101

REACTIONS (8)
  - DRUG INTERACTION [None]
  - IMPULSIVE BEHAVIOUR [None]
  - EUPHORIC MOOD [None]
  - MOOD ALTERED [None]
  - HYPERHIDROSIS [None]
  - ABNORMAL BEHAVIOUR [None]
  - FEELING ABNORMAL [None]
  - ASTHENIA [None]
